FAERS Safety Report 7341354-6 (Version None)
Quarter: 2011Q1

REPORT INFORMATION
  Report Type: 
  Country: None (occurrence: None)
  Receive Date: 20110228
  Receipt Date: 20110209
  Transmission Date: 20110831
  Serious: Yes (Hospitalization, Other)
  Sender: FDA-Public Use
  Company Number: ACO_21765_2011

PATIENT
  Age: 59 Year
  Sex: Male

DRUGS (4)
  1. AMPYRA [Suspect]
     Indication: GAIT DISTURBANCE
     Dosage: 10 MG, Q 12 HRS, ORAL
     Route: 048
     Dates: start: 20100710, end: 20110101
  2. CARVEDILOL [Concomitant]
  3. MIRAPEX [Concomitant]
  4. KLONOPIN [Concomitant]

REACTIONS (11)
  - GAIT DISTURBANCE [None]
  - STATUS EPILEPTICUS [None]
  - NAUSEA [None]
  - WEIGHT DECREASED [None]
  - VOMITING [None]
  - THERAPEUTIC RESPONSE UNEXPECTED [None]
  - PANCREATITIS [None]
  - URINARY TRACT INFECTION [None]
  - HYPERVENTILATION [None]
  - NERVOUS SYSTEM DISORDER [None]
  - CONVULSION [None]
